FAERS Safety Report 9244562 (Version 3)
Quarter: 2014Q2

REPORT INFORMATION
  Report Type: Spontaneous
  Country: CN (occurrence: CN)
  Receive Date: 20130422
  Receipt Date: 20140515
  Transmission Date: 20141212
  Serious: Yes (Hospitalization, Other)
  Sender: FDA-Public Use
  Company Number: PHHY2013CN035810

PATIENT
  Age: 60 Year
  Sex: Female

DRUGS (1)
  1. LESCOL XL [Suspect]
     Indication: HYPERLIPIDAEMIA
     Dosage: 80 MG, QD
     Route: 048
     Dates: start: 20130115, end: 20130425

REACTIONS (23)
  - Cardiac failure chronic [Recovered/Resolved]
  - Myalgia [Recovered/Resolved]
  - Blood sodium decreased [Recovered/Resolved]
  - Total bile acids increased [Recovered/Resolved]
  - Blood lactate dehydrogenase increased [Recovered/Resolved]
  - Blood phosphorus decreased [Recovered/Resolved]
  - Blood calcium decreased [Recovered/Resolved]
  - Blood bilirubin increased [Unknown]
  - Blood urea increased [Recovered/Resolved]
  - Apolipoprotein A-I decreased [Recovered/Resolved]
  - Low density lipoprotein decreased [Recovered/Resolved]
  - Blood albumin decreased [Recovered/Resolved]
  - Blood creatine phosphokinase MB increased [Recovered/Resolved]
  - Gamma-glutamyltransferase increased [Recovered/Resolved]
  - Blood alkaline phosphatase increased [Recovered/Resolved]
  - Blood creatine phosphokinase increased [Recovered/Resolved]
  - Aspartate aminotransferase increased [Recovered/Resolved]
  - Alanine aminotransferase increased [Recovered/Resolved]
  - Bilirubin conjugated increased [Recovered/Resolved]
  - Blood cholesterol decreased [Recovered/Resolved]
  - Blood iron increased [Recovered/Resolved]
  - Cystatin C increased [Recovered/Resolved]
  - Albumin globulin ratio decreased [Recovered/Resolved]
